FAERS Safety Report 9864029 (Version 3)
Quarter: 2014Q2

REPORT INFORMATION
  Report Type: Spontaneous
  Country: GB (occurrence: GB)
  Receive Date: 20140203
  Receipt Date: 20140411
  Transmission Date: 20141212
  Serious: Yes (Death, Other)
  Sender: FDA-Public Use
  Company Number: PHFR2013GB007316

PATIENT
  Age: 34 Year
  Sex: Female
  Weight: 56 kg

DRUGS (5)
  1. TASIGNA [Suspect]
     Indication: CHRONIC MYELOID LEUKAEMIA
     Dosage: 400 MG, BID
     Route: 048
     Dates: start: 20131204, end: 20131218
  2. TASIGNA [Suspect]
     Dosage: 400 MG, QD
     Route: 048
     Dates: start: 20131219
  3. DEXAMETHASONE [Concomitant]
     Indication: NERVOUS SYSTEM DISORDER
     Dosage: 16 MG, DAILY
     Route: 048
     Dates: start: 20131215
  4. LANSOPRAZOLE [Concomitant]
     Indication: PROPHYLAXIS
     Dosage: 30 MG, DAILY
     Route: 048
     Dates: start: 20131215, end: 20140121
  5. PENICILLIN V [Concomitant]
     Indication: PROPHYLAXIS
     Dosage: 1000 MG, DAILY
     Route: 048
     Dates: start: 2010

REACTIONS (6)
  - Malignant neoplasm progression [Fatal]
  - Blast crisis in myelogenous leukaemia [Fatal]
  - Chronic myeloid leukaemia [Fatal]
  - Hepatotoxicity [Unknown]
  - Liver function test abnormal [Recovered/Resolved]
  - Alanine aminotransferase increased [Recovering/Resolving]
